FAERS Safety Report 25217637 (Version 5)
Quarter: 2025Q4

REPORT INFORMATION
  Report Type: Spontaneous
  Country: US (occurrence: US)
  Receive Date: 20250420
  Receipt Date: 20251211
  Transmission Date: 20260118
  Serious: Yes (Death, Other)
  Sender: SANOFI AVENTIS
  Company Number: US-SA-2025SA108843

PATIENT
  Age: 73 Year
  Sex: Female

DRUGS (1)
  1. DUPIXENT [Suspect]
     Active Substance: DUPILUMAB
     Indication: Dermatitis atopic
     Dosage: 300 MG, QOW
     Route: 065
     Dates: start: 202503, end: 2025

REACTIONS (7)
  - Pancreatic carcinoma [Fatal]
  - Lung neoplasm malignant [Unknown]
  - Hepatic cancer [Unknown]
  - Gastrointestinal disorder [Unknown]
  - Abdominal pain upper [Recovered/Resolved]
  - Injection site pain [Unknown]
  - Needle issue [Unknown]

NARRATIVE: CASE EVENT DATE: 20250101
